FAERS Safety Report 11290799 (Version 1)
Quarter: 2015Q3

REPORT INFORMATION
  Report Type: Spontaneous
  Country: US (occurrence: None)
  Receive Date: 20150720
  Receipt Date: 20150720
  Transmission Date: 20151125
  Serious: Yes (Life-Threatening, Hospitalization, Disabling)
  Sender: FDA-Public Use
  Company Number: None

PATIENT
  Age: 26 Day
  Sex: Male
  Weight: 7.3 kg

DRUGS (1)
  1. DIAZOXIDE [Suspect]
     Active Substance: DIAZOXIDE
     Dosage: 15 MG Q8H

REACTIONS (3)
  - Cardiac failure congestive [None]
  - Condition aggravated [None]
  - Pulmonary hypertension [None]

NARRATIVE: CASE EVENT DATE: 20150509
